FAERS Safety Report 4855485-3 (Version None)
Quarter: 2005Q4

REPORT INFORMATION
  Report Type: 
  Country: None (occurrence: None)
  Receive Date: 20051214
  Receipt Date: 20051201
  Transmission Date: 20060501
  Serious: Yes (Hospitalization)
  Sender: FDA-Public Use
  Company Number: 2005002303

PATIENT
  Age: 75 Year
  Sex: Female

DRUGS (8)
  1. TARCEVA [Suspect]
     Indication: NON-SMALL CELL LUNG CANCER
     Dosage: 150 MG (QD), ORAL
     Route: 048
     Dates: start: 20051011, end: 20051125
  2. SIMVASTATIN [Suspect]
     Indication: NON-SMALL CELL LUNG CANCER
     Dosage: 40 MG (QD), ORAL; YEARS AGO
     Route: 048
     Dates: end: 20051125
  3. METFORMIN HCL [Concomitant]
  4. DYAZIDE [Concomitant]
  5. ASPIRIN [Concomitant]
  6. MEGACE [Concomitant]
  7. LEXAPRO [Concomitant]
  8. NADOLOL [Concomitant]

REACTIONS (7)
  - ABASIA [None]
  - ALANINE AMINOTRANSFERASE INCREASED [None]
  - ASPARTATE AMINOTRANSFERASE INCREASED [None]
  - DRUG INTERACTION [None]
  - MALIGNANT NEOPLASM PROGRESSION [None]
  - NON-SMALL CELL LUNG CANCER [None]
  - RHABDOMYOLYSIS [None]
